FAERS Safety Report 5523270-5 (Version None)
Quarter: 2007Q4

REPORT INFORMATION
  Report Type: 
  Country: None (occurrence: None)
  Receive Date: 20071119
  Receipt Date: 20071119
  Transmission Date: 20080405
  Serious: No
  Sender: FDA-Public Use
  Company Number: None

PATIENT
  Age: 65 Year
  Sex: Female
  Weight: 59.8748 kg

DRUGS (2)
  1. SERTRALINE HCL [Suspect]
     Indication: ANXIETY
     Dosage: 1 1/2 ONCE A DAY PO
     Route: 048
     Dates: start: 20061101, end: 20071116
  2. SERTRALINE HCL [Suspect]
     Indication: DEPRESSION
     Dosage: 1 1/2 ONCE A DAY PO
     Route: 048
     Dates: start: 20061101, end: 20071116

REACTIONS (4)
  - DRUG INEFFECTIVE [None]
  - RASH PRURITIC [None]
  - THERAPEUTIC RESPONSE UNEXPECTED WITH DRUG SUBSTITUTION [None]
  - URTICARIA [None]
